FAERS Safety Report 17886242 (Version 3)
Quarter: 2020Q3

REPORT INFORMATION
  Report Type: Report from Study
  Country: FR (occurrence: FR)
  Receive Date: 20200611
  Receipt Date: 20200729
  Transmission Date: 20201103
  Serious: Yes (Other)
  Sender: FDA-Public Use
  Company Number: FR-CELGENEUS-FRA-20200601437

PATIENT
  Age: 58 Year
  Sex: Female
  Weight: 77 kg

DRUGS (17)
  1. EMEND [Concomitant]
     Active Substance: APREPITANT
     Route: 065
  2. EMEND [Concomitant]
     Active Substance: APREPITANT
     Indication: ANTIEMETIC SUPPORTIVE CARE
     Route: 065
  3. ALLOPURINOL. [Concomitant]
     Active Substance: ALLOPURINOL
     Indication: PRODUCT USED FOR UNKNOWN INDICATION
     Route: 065
  4. BACTRIM [Concomitant]
     Active Substance: SULFAMETHOXAZOLE\TRIMETHOPRIM
     Indication: PRODUCT USED FOR UNKNOWN INDICATION
     Route: 065
  5. VALACYCLOVIR [Concomitant]
     Active Substance: VALACYCLOVIR HYDROCHLORIDE
     Indication: PRODUCT USED FOR UNKNOWN INDICATION
     Route: 065
  6. ZOPHREN [Concomitant]
     Active Substance: ONDANSETRON
     Indication: ANTIEMETIC SUPPORTIVE CARE
     Route: 065
  7. REVOLADE [Concomitant]
     Active Substance: ELTROMBOPAG
     Route: 065
  8. BACTRIM [Concomitant]
     Active Substance: SULFAMETHOXAZOLE\TRIMETHOPRIM
     Route: 065
  9. VENETOCLAX. [Concomitant]
     Active Substance: VENETOCLAX
     Indication: PROLYMPHOCYTIC LEUKAEMIA
     Dosage: 800 MILLIGRAM
     Route: 065
  10. ALLOPURINOL. [Concomitant]
     Active Substance: ALLOPURINOL
     Route: 065
  11. PANTOPRAZOLE [Concomitant]
     Active Substance: PANTOPRAZOLE
     Route: 065
  12. ISTODAX [Suspect]
     Active Substance: ROMIDEPSIN
     Indication: PROLYMPHOCYTIC LEUKAEMIA
     Dosage: DAYS 1, 8, 15 OF EACH 26?DAY?CYCLE
     Route: 041
     Dates: start: 20200327
  13. ISTODAX [Suspect]
     Active Substance: ROMIDEPSIN
     Dosage: DAYS 1, 8, 15 OF EACH 28?DAY?CYCLE
     Route: 041
     Dates: start: 20200529
  14. VENETOCLAX. [Concomitant]
     Active Substance: VENETOCLAX
     Route: 065
  15. ZOPHREN [Concomitant]
     Active Substance: ONDANSETRON
     Route: 065
  16. REVOLADE [Concomitant]
     Active Substance: ELTROMBOPAG
     Indication: PRODUCT USED FOR UNKNOWN INDICATION
     Route: 065
  17. PANTOPRAZOLE [Concomitant]
     Active Substance: PANTOPRAZOLE
     Indication: PRODUCT USED FOR UNKNOWN INDICATION
     Route: 065

REACTIONS (1)
  - Platelet disorder [Unknown]

NARRATIVE: CASE EVENT DATE: 20200528
